FAERS Safety Report 8936239 (Version 3)
Quarter: 2013Q1

REPORT INFORMATION
  Report Type: Spontaneous
  Country: AT (occurrence: AT)
  Receive Date: 20121130
  Receipt Date: 20130207
  Transmission Date: 20140127
  Serious: Yes (Death)
  Sender: FDA-Public Use
  Company Number: AT-NAPPMUNDI-DEU-2012-0009889

PATIENT
  Age: 22 Year
  Sex: Male

DRUGS (1)
  1. SUBSTITOL [Suspect]
     Indication: PRODUCT USED FOR UNKNOWN INDICATION
     Dosage: UNK
     Route: 042
     Dates: start: 20121116

REACTIONS (4)
  - Overdose [Fatal]
  - Brain oedema [Fatal]
  - Respiratory failure [Fatal]
  - Drug abuse [Fatal]
